FAERS Safety Report 17373470 (Version 1)
Quarter: 2020Q1

REPORT INFORMATION
  Report Type: Spontaneous
  Country: US (occurrence: US)
  Receive Date: 20200131
  Receipt Date: 20200131
  Transmission Date: 20200409
  Serious: No
  Sender: FDA-Public Use
  Company Number: None

PATIENT
  Age: 73 Year
  Sex: Female
  Weight: 97.52 kg

DRUGS (14)
  1. MAGNESIUM OXIDE. [Concomitant]
     Active Substance: MAGNESIUM OXIDE
  2. HEPARIN [Suspect]
     Active Substance: HEPARIN SODIUM
     Indication: DEEP VEIN THROMBOSIS
     Route: 042
     Dates: start: 20200124, end: 20200128
  3. HEPARIN [Suspect]
     Active Substance: HEPARIN SODIUM
     Indication: DEEP VEIN THROMBOSIS
     Route: 042
     Dates: start: 20200124, end: 20200128
  4. TAMSULOSIN [Concomitant]
     Active Substance: TAMSULOSIN
  5. FISH OIL [Concomitant]
     Active Substance: FISH OIL
  6. FLUOXETINE [Concomitant]
     Active Substance: FLUOXETINE HYDROCHLORIDE
  7. SOLU-MEDROL [Concomitant]
     Active Substance: METHYLPREDNISOLONE SODIUM SUCCINATE
  8. DUONEBS [Concomitant]
  9. BROVANA [Concomitant]
     Active Substance: ARFORMOTEROL TARTRATE
  10. AMLODIPINE [Concomitant]
     Active Substance: AMLODIPINE BESYLATE
  11. PULMICORT TURBUHALER [Concomitant]
     Active Substance: BUDESONIDE
  12. ATORVASTATIN [Concomitant]
     Active Substance: ATORVASTATIN
  13. FAMOTIDINE. [Concomitant]
     Active Substance: FAMOTIDINE
  14. METOPROLOL. [Concomitant]
     Active Substance: METOPROLOL

REACTIONS (3)
  - Drug ineffective [None]
  - Suspected product quality issue [None]
  - Therapeutic response decreased [None]

NARRATIVE: CASE EVENT DATE: 20200128
